FAERS Safety Report 9308750 (Version 1)
Quarter: 2013Q2

REPORT INFORMATION
  Report Type: Spontaneous
  Country: US (occurrence: US)
  Receive Date: 20130524
  Receipt Date: 20130524
  Transmission Date: 20140414
  Serious: No
  Sender: FDA-Public Use
  Company Number: US-NOVEN-13US006760

PATIENT
  Sex: Female

DRUGS (1)
  1. MINIVELLE [Suspect]
     Indication: HOT FLUSH
     Dosage: 0.05 MG, TWICE WEEKLY
     Route: 062

REACTIONS (2)
  - Rash [Unknown]
  - Accidental exposure to product [Unknown]
